FAERS Safety Report 6663750-2 (Version None)
Quarter: 2010Q2

REPORT INFORMATION
  Report Type: 
  Country: None (occurrence: None)
  Receive Date: 20100401
  Receipt Date: 20100323
  Transmission Date: 20101027
  Serious: Yes (Life-Threatening)
  Sender: FDA-Public Use
  Company Number: NL-ABBOTT-10P-114-0633997-00

PATIENT
  Age: 9 Year
  Sex: Male

DRUGS (2)
  1. DEPAKINE CHRONO [Suspect]
     Indication: EPILEPSY
     Route: 048
     Dates: start: 20090101
  2. LAMOTRIGINE [Suspect]
     Indication: EPILEPSY
     Dates: start: 20100110, end: 20100204

REACTIONS (2)
  - DISTURBANCE IN ATTENTION [None]
  - STEVENS-JOHNSON SYNDROME [None]
